FAERS Safety Report 15928737 (Version 3)
Quarter: 2019Q2

REPORT INFORMATION
  Report Type: Spontaneous
  Country: US (occurrence: US)
  Receive Date: 20190206
  Receipt Date: 20190417
  Transmission Date: 20190711
  Serious: Yes (Death, Hospitalization, Other)
  Sender: FDA-Public Use
  Company Number: US-ASTRAZENECA-2018SF14393

PATIENT
  Age: 24442 Day
  Sex: Female

DRUGS (41)
  1. PREVACID [Suspect]
     Active Substance: LANSOPRAZOLE
     Route: 065
     Dates: start: 2004, end: 2016
  2. NIFEDIPINE. [Concomitant]
     Active Substance: NIFEDIPINE
  3. GABAPENTIN. [Concomitant]
     Active Substance: GABAPENTIN
  4. SYNTHROID [Concomitant]
     Active Substance: LEVOTHYROXINE SODIUM
  5. NEXIUM [Suspect]
     Active Substance: ESOMEPRAZOLE MAGNESIUM
     Route: 048
     Dates: start: 2004, end: 2016
  6. PRILOSEC OTC [Suspect]
     Active Substance: OMEPRAZOLE MAGNESIUM
     Route: 048
  7. ZOCOR [Concomitant]
     Active Substance: SIMVASTATIN
  8. ALLOPURINOL. [Concomitant]
     Active Substance: ALLOPURINOL
  9. LORATADINE. [Concomitant]
     Active Substance: LORATADINE
  10. MAGNESIUM OXIDE. [Concomitant]
     Active Substance: MAGNESIUM OXIDE
  11. METOPROLOL. [Concomitant]
     Active Substance: METOPROLOL
  12. TRIAMCINOLON [Concomitant]
  13. BENZONATATE. [Concomitant]
     Active Substance: BENZONATATE
  14. SOMA [Concomitant]
     Active Substance: CARISOPRODOL
  15. HYDROCODONE-ACETAMINOPHEN [Concomitant]
     Active Substance: ACETAMINOPHEN\HYDROCODONE
  16. METOLAZONE. [Concomitant]
     Active Substance: METOLAZONE
  17. SPIRONOLACTONE. [Concomitant]
     Active Substance: SPIRONOLACTONE
  18. COLCRYS [Concomitant]
     Active Substance: COLCHICINE
  19. ASPIRIN. [Concomitant]
     Active Substance: ASPIRIN
  20. TRAZODONE [Concomitant]
     Active Substance: TRAZODONE HYDROCHLORIDE
  21. GEMFIBROZIL. [Concomitant]
     Active Substance: GEMFIBROZIL
  22. NEXIUM [Suspect]
     Active Substance: ESOMEPRAZOLE MAGNESIUM
     Route: 048
  23. PRILOSEC [Suspect]
     Active Substance: OMEPRAZOLE MAGNESIUM
     Route: 048
     Dates: start: 2004, end: 2016
  24. APRESOLINE HYDROCHLORIDE [Concomitant]
     Active Substance: HYDRALAZINE HYDROCHLORIDE
  25. GLUCOTROL [Concomitant]
     Active Substance: GLIPIZIDE
  26. INSULIN DETEMIR [Concomitant]
     Active Substance: INSULIN DETEMIR
  27. POLYETHYLENE GLYCOL [Concomitant]
     Active Substance: POLYETHYLENE GLYCOLS
  28. FUROSEMIDE. [Concomitant]
     Active Substance: FUROSEMIDE
  29. MECLIZINE [Concomitant]
     Active Substance: MECLIZINE HYDROCHLORIDE
  30. NEXIUM 24HR [Suspect]
     Active Substance: ESOMEPRAZOLE MAGNESIUM
     Route: 048
  31. COLCRYS [Concomitant]
     Active Substance: COLCHICINE
  32. INSULIN LISPRO [Concomitant]
     Active Substance: INSULIN LISPRO
  33. PREMARIN [Concomitant]
     Active Substance: ESTROGENS, CONJUGATED
  34. PREVACID 24 HR [Suspect]
     Active Substance: LANSOPRAZOLE
     Route: 065
  35. ABILIFY [Concomitant]
     Active Substance: ARIPIPRAZOLE
  36. VITAMIN B12 [Concomitant]
     Active Substance: CYANOCOBALAMIN
  37. COREG [Concomitant]
     Active Substance: CARVEDILOL
  38. LORATADINE. [Concomitant]
     Active Substance: LORATADINE
  39. INDOMETHACIN. [Concomitant]
     Active Substance: INDOMETHACIN
  40. RANITIDINE. [Concomitant]
     Active Substance: RANITIDINE
  41. DOXYCYCLINE. [Concomitant]
     Active Substance: DOXYCYCLINE

REACTIONS (5)
  - Renal failure [Unknown]
  - Death [Fatal]
  - End stage renal disease [Unknown]
  - Chronic kidney disease [Not Recovered/Not Resolved]
  - Acute kidney injury [Unknown]

NARRATIVE: CASE EVENT DATE: 20150907
